FAERS Safety Report 24268255 (Version 1)
Quarter: 2024Q3

REPORT INFORMATION
  Report Type: Other
  Country: FR (occurrence: FR)
  Receive Date: 20240830
  Receipt Date: 20240830
  Transmission Date: 20241017
  Serious: Yes (Hospitalization)
  Sender: BRAINTREE
  Company Number: FR-BRAINTREE LABORATORIES, INC.-2024BTE00554

PATIENT
  Age: 55 Year
  Sex: Female

DRUGS (1)
  1. MAGNESIUM SULFATE\POTASSIUM SULFATE\SODIUM SULFATE [Suspect]
     Active Substance: MAGNESIUM SULFATE\POTASSIUM SULFATE\SODIUM SULFATE
     Indication: Bowel preparation
     Dosage: 1 DOSAGE FORM
     Route: 048
     Dates: start: 20240614, end: 20240614

REACTIONS (1)
  - Retroperitoneal fibrosis [Recovered/Resolved]

NARRATIVE: CASE EVENT DATE: 20240614
